FAERS Safety Report 7989190-1 (Version None)
Quarter: 2011Q4

REPORT INFORMATION
  Report Type: 
  Country: None (occurrence: None)
  Receive Date: 20111219
  Receipt Date: 20111207
  Transmission Date: 20120403
  Serious: Yes (Hospitalization)
  Sender: FDA-Public Use
  Company Number: AU-JNJFOC-20111203195

PATIENT
  Sex: Female

DRUGS (3)
  1. DOXORUBICIN HCL [Suspect]
     Dosage: 20 MG IN 10 ML
     Route: 042
  2. DOXORUBICIN HCL [Suspect]
     Indication: PRODUCT USED FOR UNKNOWN INDICATION
     Dosage: 50 MG IN 25 ML
     Route: 042
  3. DOXORUBICIN HCL [Suspect]
     Route: 042
     Dates: start: 20111026, end: 20111026

REACTIONS (5)
  - SKIN LESION [None]
  - PANCYTOPENIA [None]
  - ADVERSE EVENT [None]
  - BODY TEMPERATURE INCREASED [None]
  - PRODUCT QUALITY ISSUE [None]
